FAERS Safety Report 14995524 (Version 5)
Quarter: 2018Q3

REPORT INFORMATION
  Report Type: Spontaneous
  Country: US (occurrence: US)
  Receive Date: 20180611
  Receipt Date: 20180808
  Transmission Date: 20181010
  Serious: Yes (Other)
  Sender: FDA-Public Use
  Company Number: US-PFIZER INC-2018235333

PATIENT
  Age: 70 Year
  Sex: Male

DRUGS (5)
  1. CISPLATIN. [Suspect]
     Active Substance: CISPLATIN
     Dosage: 70 MG/M2, CYCLIC, ON DAY 1 EVERY 2 WEEKS
     Route: 042
  2. VINBLASTIN [Suspect]
     Active Substance: VINBLASTINE
     Indication: TRANSITIONAL CELL CARCINOMA
     Dosage: 3 MG/M2, CYCLIC, ON DAY 1 EVERY 2 WEEKS
     Route: 042
  3. CISPLATIN. [Suspect]
     Active Substance: CISPLATIN
     Indication: TRANSITIONAL CELL CARCINOMA
     Dosage: 80 MG/M2, CYCLIC, ON DAYS 1, 2, AND 3, PLANNED FOR 4 CYCLES
     Route: 042
  4. DOXORUBICIN HCL [Suspect]
     Active Substance: DOXORUBICIN HYDROCHLORIDE
     Indication: TRANSITIONAL CELL CARCINOMA
     Dosage: 30 MG/M2, CYCLIC, ON DAY 1 EVERY 2 WEEKS
     Route: 042
  5. METHOTREXATE SODIUM. [Suspect]
     Active Substance: METHOTREXATE SODIUM
     Indication: TRANSITIONAL CELL CARCINOMA
     Dosage: 30 MG/M2, CYCLIC, ON DAY 1 EVERY 2 WEEKS
     Route: 042

REACTIONS (4)
  - Cytopenia [Unknown]
  - Nausea [Unknown]
  - Fatigue [Unknown]
  - Decreased appetite [Unknown]
